FAERS Safety Report 8901326 (Version 1)
Quarter: 2012Q4

REPORT INFORMATION
  Report Type: 
  Country: US (occurrence: US)
  Receive Date: 20121109
  Receipt Date: 20121109
  Transmission Date: 20130627
  Serious: No
  Sender: FDA-Public Use
  Company Number: US-PFIZER INC-2012278388

PATIENT
  Age: 32 Year
  Sex: Female
  Weight: 79.37 kg

DRUGS (4)
  1. ADVIL MIGRAINE [Suspect]
     Indication: MIGRAINE
     Dosage: 800 mg, daily
     Route: 048
     Dates: start: 201211
  2. NORCO [Suspect]
     Indication: MIGRAINE
     Dosage: UNK
     Route: 048
     Dates: start: 2010
  3. IMITREX [Suspect]
     Indication: MIGRAINE
     Dosage: UNK
     Route: 048
     Dates: start: 2007
  4. VICODIN [Concomitant]
     Indication: MIGRAINE
     Dosage: 750 mg, every 6 hours

REACTIONS (1)
  - Drug ineffective [Unknown]
